FAERS Safety Report 18612118 (Version 2)
Quarter: 2020Q4

REPORT INFORMATION
  Report Type: Spontaneous
  Country: JP (occurrence: JP)
  Receive Date: 20201214
  Receipt Date: 20201223
  Transmission Date: 20210114
  Serious: Yes (Hospitalization)
  Sender: FDA-Public Use
  Company Number: JP-DSJP-DSJ-2020-137899AA

PATIENT
  Age: 60 Year
  Sex: Male

DRUGS (2)
  1. LIXIANA TABLETS [Suspect]
     Active Substance: EDOXABAN TOSYLATE
     Indication: CARDIAC VENTRICULAR THROMBOSIS
  2. LIXIANA TABLETS [Suspect]
     Active Substance: EDOXABAN TOSYLATE
     Indication: CEREBRAL ARTERY OCCLUSION
     Dosage: UNK
     Route: 065

REACTIONS (1)
  - Cerebral artery occlusion [Recovered/Resolved with Sequelae]
